FAERS Safety Report 18349197 (Version 2)
Quarter: 2020Q4

REPORT INFORMATION
  Report Type: Spontaneous
  Country: FR (occurrence: FR)
  Receive Date: 20201006
  Receipt Date: 20201214
  Transmission Date: 20210114
  Serious: No
  Sender: FDA-Public Use
  Company Number: FR-LUPIN PHARMACEUTICALS INC.-2020-06635

PATIENT
  Age: 9 Year
  Sex: Female

DRUGS (3)
  1. TAZOCILLINE [Concomitant]
     Active Substance: PIPERACILLIN SODIUM\TAZOBACTAM SODIUM
     Indication: PNEUMONIA
     Dosage: UNK
     Route: 065
  2. NEBCINE [Concomitant]
     Active Substance: TOBRAMYCIN
     Indication: PNEUMONIA
     Dosage: UNK
     Route: 065
  3. VORICONAZOLE. [Suspect]
     Active Substance: VORICONAZOLE
     Indication: BRONCHOPULMONARY ASPERGILLOSIS ALLERGIC
     Dosage: 200 MILLIGRAM, QD
     Route: 065

REACTIONS (2)
  - Melanocytic naevus [Recovering/Resolving]
  - Solar lentigo [Recovering/Resolving]
